FAERS Safety Report 4567082-8 (Version None)
Quarter: 2005Q1

REPORT INFORMATION
  Report Type: 
  Country: None (occurrence: None)
  Receive Date: 20050201
  Receipt Date: 20050121
  Transmission Date: 20050727
  Serious: Yes (Hospitalization)
  Sender: FDA-Public Use
  Company Number: GB-ROCHE-393701

PATIENT
  Age: 24 Year
  Sex: Female
  Weight: 120.2 kg

DRUGS (1)
  1. XENICAL [Suspect]
     Indication: OBESITY
     Route: 048
     Dates: start: 20040817

REACTIONS (1)
  - HEPATIC FUNCTION ABNORMAL [None]
